FAERS Safety Report 16347673 (Version 1)
Quarter: 2019Q2

REPORT INFORMATION
  Report Type: Spontaneous
  Country: GB (occurrence: GB)
  Receive Date: 20190523
  Receipt Date: 20190523
  Transmission Date: 20190711
  Serious: Yes (Other)
  Sender: FDA-Public Use
  Company Number: GB-TEVA-2019-GB-1052971

PATIENT
  Age: 35 Year
  Sex: Male

DRUGS (2)
  1. OLANZAPINE. [Suspect]
     Active Substance: OLANZAPINE
     Indication: SCHIZOPHRENIA
     Dosage: INITIAL DOSE NOT STATED; DOSE INCREASED UP TO 60MG/DAY ON HIS OWN ACCORD
     Route: 048
  2. ZUCLOPENTHIXOL [Concomitant]
     Active Substance: ZUCLOPENTHIXOL
     Indication: SCHIZOPHRENIA
     Dosage: 60 MILLIGRAM DAILY;
     Route: 048

REACTIONS (4)
  - Withdrawal syndrome [Recovering/Resolving]
  - Intentional product misuse [Unknown]
  - Paranoia [Recovering/Resolving]
  - Intentional overdose [Unknown]
